FAERS Safety Report 13522622 (Version 1)
Quarter: 2017Q2

REPORT INFORMATION
  Report Type: Spontaneous
  Country: US (occurrence: US)
  Receive Date: 20170508
  Receipt Date: 20170508
  Transmission Date: 20170830
  Serious: No
  Sender: FDA-Public Use
  Company Number: US-ASTRAZENECA-2017SE45759

PATIENT
  Age: 104 Day
  Sex: Male
  Weight: 5.1 kg

DRUGS (2)
  1. NEXIUM [Suspect]
     Active Substance: ESOMEPRAZOLE MAGNESIUM
     Indication: GASTROOESOPHAGEAL REFLUX DISEASE
     Route: 048
     Dates: start: 20170420
  2. NEXIUM [Suspect]
     Active Substance: ESOMEPRAZOLE MAGNESIUM
     Indication: GASTROOESOPHAGEAL REFLUX DISEASE
     Route: 048
     Dates: start: 201703, end: 20170419

REACTIONS (7)
  - Intentional product misuse [Unknown]
  - Weight increased [Unknown]
  - Oropharyngeal pain [Recovering/Resolving]
  - Drug ineffective [Unknown]
  - Gastrooesophageal reflux disease [Recovering/Resolving]
  - Burning sensation [Unknown]
  - Vomiting [Unknown]

NARRATIVE: CASE EVENT DATE: 20170413
